FAERS Safety Report 5214129-1 (Version None)
Quarter: 2007Q1

REPORT INFORMATION
  Report Type: 
  Country: None (occurrence: None)
  Receive Date: 20070122
  Receipt Date: 20070112
  Transmission Date: 20070707
  Serious: Yes (Hospitalization)
  Sender: FDA-Public Use
  Company Number: GB-BAYER-200710056BNE

PATIENT
  Age: 43 Year

DRUGS (10)
  1. CIPROFLOXACIN [Suspect]
     Route: 042
     Dates: start: 20061211, end: 20061214
  2. CYCLIZINE [Concomitant]
  3. DICLOFENAC SODIUM [Concomitant]
  4. FERROUS SULFATE TAB [Concomitant]
  5. FRAGMIN [Concomitant]
     Route: 058
  6. METRONIDAZOLE [Concomitant]
  7. MORPHINE [Concomitant]
  8. OMEPRAZOLE [Concomitant]
  9. ONDANSETRON [Concomitant]
  10. PARACETAMOL [Concomitant]

REACTIONS (5)
  - DEHYDRATION [None]
  - DIZZINESS [None]
  - NAUSEA [None]
  - TINNITUS [None]
  - VOMITING [None]
